FAERS Safety Report 4779722-9 (Version None)
Quarter: 2005Q3

REPORT INFORMATION
  Report Type: 
  Country: None (occurrence: None)
  Receive Date: 20050914
  Receipt Date: 20050329
  Transmission Date: 20060218
  Serious: Yes (Hospitalization)
  Sender: FDA-Public Use
  Company Number: 163-20785-05030752

PATIENT
  Age: 34 Year
  Sex: Male

DRUGS (8)
  1. THALOMID [Suspect]
     Indication: GLIOMA
     Dosage: 100 MG, ORAL; 200 MG, ORAL
     Route: 048
     Dates: start: 20050209, end: 20050215
  2. THALOMID [Suspect]
     Indication: GLIOMA
     Dosage: 100 MG, ORAL; 200 MG, ORAL
     Route: 048
     Dates: start: 20050216, end: 20050308
  3. IRINOTECAN HCL [Suspect]
     Indication: GLIOMA
     Dosage: 251 MG, INTRAVENOUS
     Route: 042
     Dates: start: 20050209, end: 20050216
  4. VALPROATE (VALPROATE BISMUTH) [Concomitant]
  5. DEXAMETHASONE [Concomitant]
  6. BACTRIM [Concomitant]
  7. LEVETIRACETAM [Concomitant]
  8. METHYLPHENIDATE HCL [Concomitant]

REACTIONS (4)
  - ATELECTASIS [None]
  - PLEURAL FIBROSIS [None]
  - RESPIRATORY FAILURE [None]
  - THROMBOSIS [None]
